FAERS Safety Report 7585587-2 (Version None)
Quarter: 2011Q2

REPORT INFORMATION
  Report Type: 
  Country: None (occurrence: None)
  Receive Date: 20110628
  Receipt Date: 20110628
  Transmission Date: 20111010
  Serious: Yes (Life-Threatening, Other)
  Sender: FDA-Public Use
  Company Number: None

PATIENT
  Sex: Male
  Weight: 88.6 kg

DRUGS (9)
  1. NORVASC [Concomitant]
  2. METFORMIN HCL [Concomitant]
  3. ACTOS [Suspect]
     Indication: DIABETES MELLITUS
     Dates: start: 20070216, end: 20110509
  4. GLIPIZIDE [Concomitant]
  5. ASPIRIN [Concomitant]
  6. JANUVIA [Concomitant]
  7. TOPROL-XL [Concomitant]
  8. DIOVAN [Concomitant]
  9. MICARDIS [Concomitant]

REACTIONS (1)
  - BLADDER CANCER [None]
